FAERS Safety Report 17761914 (Version 1)
Quarter: 2020Q2

REPORT INFORMATION
  Report Type: Spontaneous
  Country: US (occurrence: US)
  Receive Date: 20200508
  Receipt Date: 20200508
  Transmission Date: 20200714
  Serious: No
  Sender: FDA-Public Use
  Company Number: US-TEVA-2020-US-1232222

PATIENT
  Sex: Female

DRUGS (1)
  1. PREGABALIN TEVA [Suspect]
     Active Substance: PREGABALIN
     Indication: NEURALGIA
     Dosage: 100 MG
     Route: 065
     Dates: start: 20200415

REACTIONS (2)
  - Drug ineffective [Unknown]
  - Neuralgia [Recovered/Resolved]
